FAERS Safety Report 10944794 (Version 1)
Quarter: 2015Q1

REPORT INFORMATION
  Report Type: Report from Study
  Country: CL (occurrence: CL)
  Receive Date: 20150323
  Receipt Date: 20150323
  Transmission Date: 20150721
  Serious: Yes (Hospitalization)
  Sender: FDA-Public Use
  Company Number: CL-BAYER-2015-037377

PATIENT
  Age: 31 Year
  Sex: Female

DRUGS (4)
  1. BETAFERON [Suspect]
     Active Substance: INTERFERON BETA-1B
     Indication: RELAPSING-REMITTING MULTIPLE SCLEROSIS
     Dosage: 250 ?G, QOD
     Route: 058
     Dates: start: 201401
  2. REFLEXAN [Concomitant]
     Dosage: 2.5 MG, QD
     Route: 048
  3. YASMIN CD [Concomitant]
     Active Substance: DROSPIRENONE\ETHINYL ESTRADIOL
     Route: 048
  4. VITAMIN D [Concomitant]
     Active Substance: CHOLECALCIFEROL
     Dosage: 8000 IU, QD
     Route: 048

REACTIONS (2)
  - Medication error [None]
  - Multiple sclerosis relapse [None]

NARRATIVE: CASE EVENT DATE: 201412
